FAERS Safety Report 7993722-7 (Version None)
Quarter: 2011Q4

REPORT INFORMATION
  Report Type: 
  Country: None (occurrence: None)
  Receive Date: 20111220
  Receipt Date: 20111216
  Transmission Date: 20120403
  Serious: Yes (Death, Hospitalization, Other)
  Sender: FDA-Public Use
  Company Number: IT-BRISTOL-MYERS SQUIBB COMPANY-16224651

PATIENT
  Age: 87 Year
  Sex: Male

DRUGS (1)
  1. COUMADIN [Suspect]
     Indication: ATRIAL FIBRILLATION
     Dosage: 1DF=1UNIT
     Route: 048
     Dates: start: 20080101, end: 20110809

REACTIONS (3)
  - FALL [None]
  - DEATH [None]
  - CEREBRAL HAEMORRHAGE [None]
